FAERS Safety Report 4811426-6 (Version None)
Quarter: 2005Q4

REPORT INFORMATION
  Report Type: 
  Country: None (occurrence: None)
  Receive Date: 20051026
  Receipt Date: 20051026
  Transmission Date: 20060501
  Serious: Yes (Death, Hospitalization)
  Sender: FDA-Public Use
  Company Number: None

PATIENT
  Sex: Female
  Weight: 60.2 kg

DRUGS (2)
  1. CYTARABINE [Suspect]
     Indication: ACUTE MYELOID LEUKAEMIA
     Dosage: SEE IMAGE
     Route: 042
     Dates: start: 20051005
  2. DAUNORUBICIN [Suspect]
     Dosage: SEE IMAGE
     Route: 042

REACTIONS (12)
  - BACTERIAL INFECTION [None]
  - BLOOD CULTURE POSITIVE [None]
  - BRONCHOPULMONARY ASPERGILLOSIS [None]
  - CARDIAC FAILURE CONGESTIVE [None]
  - DIFFUSE ALVEOLAR DAMAGE [None]
  - ENTEROCOCCAL INFECTION [None]
  - HYPOTENSION [None]
  - RESPIRATORY DISORDER [None]
  - SEPSIS [None]
  - STENOTROPHOMONAS INFECTION [None]
  - TACHYCARDIA [None]
  - TACHYPNOEA [None]
